FAERS Safety Report 19069395 (Version 7)
Quarter: 2022Q2

REPORT INFORMATION
  Report Type: Report from Study
  Country: US (occurrence: US)
  Receive Date: 20210329
  Receipt Date: 20220402
  Transmission Date: 20220721
  Serious: Yes (Other)
  Sender: FDA-Public Use
  Company Number: NVSC2021US065947

PATIENT
  Sex: Female

DRUGS (16)
  1. KESIMPTA [Suspect]
     Active Substance: OFATUMUMAB
     Indication: Relapsing multiple sclerosis
     Dosage: UNK UNK, QMO
     Route: 058
     Dates: start: 20210129, end: 20210917
  2. ADDERALL [Concomitant]
     Active Substance: AMPHETAMINE ASPARTATE\AMPHETAMINE SULFATE\DEXTROAMPHETAMINE SACCHARATE\DEXTROAMPHETAMINE SULFATE
     Indication: Product used for unknown indication
     Dosage: 30 MG, BID (DAILY FOR 30 DAYS)
     Route: 048
     Dates: start: 20210613
  3. LIPITOR [Concomitant]
     Active Substance: ATORVASTATIN CALCIUM
     Indication: Product used for unknown indication
     Dosage: 20 MG, QN (AT BEDTIME)
     Route: 048
     Dates: start: 20210505
  4. LIORESAL [Concomitant]
     Active Substance: BACLOFEN
     Indication: Product used for unknown indication
     Dosage: 1 DOSAGE FORM, QID
     Route: 048
     Dates: start: 20210405, end: 20220126
  5. VITAMIN D [Concomitant]
     Active Substance: VITAMIN D NOS
     Indication: Product used for unknown indication
     Dosage: 2000 IU, QD (25 UG (1000 UT)
     Route: 048
  6. DALFAMPRIDINE [Concomitant]
     Active Substance: DALFAMPRIDINE
     Indication: Product used for unknown indication
     Dosage: 1 DOSAGE FORM, BID (SUSTAINED RELEASE 4-12 HOURS)
     Route: 048
     Dates: start: 20210917, end: 20220316
  7. CYMBALTA [Concomitant]
     Active Substance: DULOXETINE HYDROCHLORIDE
     Indication: Product used for unknown indication
     Dosage: 30 MG, QN (AT BEDTIME)
     Route: 048
     Dates: start: 20210404
  8. CYMBALTA [Concomitant]
     Active Substance: DULOXETINE HYDROCHLORIDE
     Dosage: 60 MG, QN (AT BEDTIME)
     Route: 048
     Dates: start: 20210512
  9. SYNTHROID [Concomitant]
     Active Substance: LEVOTHYROXINE SODIUM
     Indication: Product used for unknown indication
     Dosage: 88 MCG/ML (TAKES NIGHTLY AS PER PCP)
     Route: 048
     Dates: start: 20210512
  10. LEVOXYL [Concomitant]
     Active Substance: LEVOTHYROXINE SODIUM
     Indication: Product used for unknown indication
     Dosage: 88 UG, QD
     Route: 048
     Dates: start: 20210512
  11. VITAMIN B12 [Concomitant]
     Active Substance: CYANOCOBALAMIN
     Indication: Product used for unknown indication
     Dosage: UNK
     Route: 065
  12. ZANAFLEX [Concomitant]
     Active Substance: TIZANIDINE HYDROCHLORIDE
     Indication: Product used for unknown indication
     Dosage: 4 MG, QD (IF NEED)
     Route: 048
     Dates: start: 20211201
  13. FOLATE SODIUM [Concomitant]
     Active Substance: FOLATE SODIUM
     Indication: Product used for unknown indication
     Dosage: UNK
     Route: 065
  14. DIFLUCAN [Concomitant]
     Active Substance: FLUCONAZOLE
     Indication: Product used for unknown indication
     Dosage: 1 DOSAGE FORM, QD (REPEAT ONE DOSE IN ONE WEEK)
     Route: 048
  15. NABUMETONE [Concomitant]
     Active Substance: NABUMETONE
     Indication: Product used for unknown indication
     Dosage: UNK
     Route: 065
  16. MACROBID [Concomitant]
     Active Substance: NITROFURANTOIN\NITROFURANTOIN MONOHYDRATE
     Indication: Product used for unknown indication
     Dosage: UNK
     Route: 065

REACTIONS (17)
  - Multiple sclerosis pseudo relapse [Unknown]
  - Hypothyroidism [Unknown]
  - Neurogenic bladder [Unknown]
  - Oral candidiasis [Unknown]
  - Mouth ulceration [Recovered/Resolved]
  - Asthenia [Unknown]
  - Product dose omission issue [Unknown]
  - Fall [Unknown]
  - Memory impairment [Unknown]
  - Neck pain [Unknown]
  - Muscle spasticity [Unknown]
  - Gait disturbance [Unknown]
  - Malaise [Unknown]
  - Hypoaesthesia [Unknown]
  - Product use issue [Unknown]
  - Urinary tract infection [Unknown]
  - Therapeutic response shortened [Unknown]
